FAERS Safety Report 23632604 (Version 1)
Quarter: 2024Q1

REPORT INFORMATION
  Report Type: Spontaneous
  Country: US (occurrence: US)
  Receive Date: 20240314
  Receipt Date: 20240314
  Transmission Date: 20240409
  Serious: No
  Sender: FDA-Public Use
  Company Number: US-BIOGEN-2024BI01253186

PATIENT
  Sex: Female

DRUGS (10)
  1. VUMERITY [Suspect]
     Active Substance: DIROXIMEL FUMARATE
     Indication: Multiple sclerosis
     Route: 050
     Dates: start: 20220611
  2. IBUPROFEN [Concomitant]
     Active Substance: IBUPROFEN
     Route: 050
  3. VITAMINS [Concomitant]
     Active Substance: VITAMINS
     Route: 050
  4. VENLAFAXINE HCL [Concomitant]
     Active Substance: VENLAFAXINE HYDROCHLORIDE
     Route: 050
  5. BACLOFEN [Concomitant]
     Active Substance: BACLOFEN
     Route: 050
  6. GABAPENTIN [Concomitant]
     Active Substance: GABAPENTIN
     Route: 050
  7. ESTRADIOL [Concomitant]
     Active Substance: ESTRADIOL
     Route: 050
  8. ATORVASTATIN CALCIUM [Concomitant]
     Active Substance: ATORVASTATIN CALCIUM
     Route: 050
  9. SINGULAIR [Concomitant]
     Active Substance: MONTELUKAST SODIUM
     Route: 050
  10. ZOLPIDEM TARTRATE [Concomitant]
     Active Substance: ZOLPIDEM TARTRATE
     Route: 050

REACTIONS (2)
  - COVID-19 [Unknown]
  - Rash [Unknown]
